FAERS Safety Report 9903673 (Version 1)
Quarter: 2014Q1

REPORT INFORMATION
  Report Type: Spontaneous
  Country: DE (occurrence: DE)
  Receive Date: 20140217
  Receipt Date: 20140217
  Transmission Date: 20141002
  Serious: Yes (Congenital Anomaly, Other)
  Sender: FDA-Public Use
  Company Number: GXKR2014DE000892

PATIENT
  Age: 1 Day
  Sex: Female
  Weight: 1.73 kg

DRUGS (1)
  1. LAMOTRIGINE [Suspect]
     Indication: JUVENILE MYOCLONIC EPILEPSY
     Dosage: 150 MG/D/ DOSAGE REDUCED: 100 MG/D, 75 MG/D FROM GW33+2
     Route: 064
     Dates: start: 20111231, end: 20120828

REACTIONS (6)
  - Congenital anaemia [Unknown]
  - Hydrops foetalis [Recovered/Resolved]
  - Pneumocystis jirovecii pneumonia [Recovered/Resolved]
  - Ventricular septal defect [Recovered/Resolved]
  - Atrial septal defect [Unknown]
  - Combined immunodeficiency [Not Recovered/Not Resolved]
